FAERS Safety Report 5029181-6 (Version None)
Quarter: 2006Q2

REPORT INFORMATION
  Report Type: 
  Country: None (occurrence: None)
  Receive Date: 20060613
  Receipt Date: 20060524
  Transmission Date: 20061013
  Serious: Yes (Hospitalization)
  Sender: FDA-Public Use
  Company Number: 6022806

PATIENT
  Age: 76 Year
  Sex: Female

DRUGS (5)
  1. SEQUACOR [Suspect]
     Indication: ATRIAL FIBRILLATION
     Dosage: 10,000 MG (10 MG, 1 IN 1 D);
     Dates: start: 20060101, end: 20060430
  2. LANOXIN [Concomitant]
  3. LASIX [Concomitant]
  4. SINTROM (ACENOCCOUMAROL) [Concomitant]
  5. LUVION (CANRENOIC ACID) [Concomitant]

REACTIONS (1)
  - HEPATITIS [None]
